FAERS Safety Report 7574852-0 (Version None)
Quarter: 2011Q2

REPORT INFORMATION
  Report Type: 
  Country: None (occurrence: None)
  Receive Date: 20110627
  Receipt Date: 20110616
  Transmission Date: 20111010
  Serious: Yes (Hospitalization)
  Sender: FDA-Public Use
  Company Number: BR-ASTRAZENECA-2011SE37048

PATIENT
  Age: 68 Year
  Sex: Male
  Weight: 88 kg

DRUGS (13)
  1. NEXIUM [Suspect]
     Route: 048
     Dates: start: 20070101
  2. NEXIUM [Suspect]
     Route: 048
  3. ZESTRIL [Suspect]
     Indication: HYPERTENSION
     Route: 048
     Dates: start: 19990101
  4. NEXIUM [Suspect]
     Indication: GASTROOESOPHAGEAL REFLUX DISEASE
     Route: 048
     Dates: start: 20000101
  5. SOMALGIN CARDIO [Concomitant]
     Route: 048
     Dates: start: 19990101
  6. NEXIUM [Suspect]
     Indication: GASTRITIS
     Route: 048
     Dates: start: 20000101
  7. NEXIUM [Suspect]
     Route: 048
     Dates: end: 20070101
  8. NEXIUM [Suspect]
     Route: 048
  9. NEXIUM [Suspect]
     Route: 048
     Dates: end: 20070101
  10. NEXIUM [Suspect]
     Route: 048
     Dates: start: 20070101
  11. PLAVIX [Concomitant]
     Route: 048
     Dates: start: 19990101
  12. LIPITOR [Concomitant]
     Indication: HYPERCHOLESTEROLAEMIA
     Route: 048
     Dates: start: 19990101
  13. NORVASC [Concomitant]
     Indication: HYPERTENSION
     Route: 048
     Dates: start: 19990101

REACTIONS (7)
  - GASTRITIS [None]
  - ARTERIAL OCCLUSIVE DISEASE [None]
  - SURGERY [None]
  - OVERDOSE [None]
  - PROSTATE CANCER [None]
  - STENT PLACEMENT [None]
  - GASTROOESOPHAGEAL REFLUX DISEASE [None]
